FAERS Safety Report 9069396 (Version 3)
Quarter: 2013Q1

REPORT INFORMATION
  Report Type: Report from Study
  Country: DE (occurrence: DE)
  Receive Date: 20130215
  Receipt Date: 20130306
  Transmission Date: 20140127
  Serious: Yes (Hospitalization)
  Sender: FDA-Public Use
  Company Number: DE-ROCHE-1184937

PATIENT
  Age: 53 Year
  Sex: Female
  Weight: 80 kg

DRUGS (6)
  1. VEMURAFENIB [Suspect]
     Indication: MALIGNANT MELANOMA
     Dosage: LAST DOSE PRIOR TO SAE 24/JAN/2013
     Route: 048
     Dates: start: 20120127
  2. LEVOTHYROXIN [Concomitant]
     Route: 065
     Dates: start: 201006
  3. IBUPROFEN [Concomitant]
     Route: 065
     Dates: start: 20121004
  4. TILIDIN [Concomitant]
     Route: 065
     Dates: start: 20121004
  5. TOREM [Concomitant]
     Route: 065
     Dates: start: 20121103
  6. DICLOFENAC [Concomitant]
     Route: 065
     Dates: start: 20120907, end: 20121004

REACTIONS (1)
  - Anaemia [Unknown]
